FAERS Safety Report 6690852-7 (Version None)
Quarter: 2010Q2

REPORT INFORMATION
  Report Type: 
  Country: None (occurrence: None)
  Receive Date: 20100421
  Receipt Date: 20100415
  Transmission Date: 20101027
  Serious: Yes (Death, Life-Threatening, Hospitalization)
  Sender: FDA-Public Use
  Company Number: IT-CELGENEUS-083-21880-10011259

PATIENT
  Sex: Female

DRUGS (5)
  1. REVLIMID [Suspect]
     Route: 048
     Dates: start: 20091123, end: 20091213
  2. REVLIMID [Suspect]
     Dosage: DOSE LOWERED
     Route: 048
  3. REVLIMID [Suspect]
     Route: 048
     Dates: end: 20100407
  4. ASPIRIN [Concomitant]
     Route: 048
  5. BACTRIM [Concomitant]
     Indication: PROPHYLAXIS
     Route: 048

REACTIONS (9)
  - CAMPYLOBACTER GASTROENTERITIS [None]
  - DISEASE PROGRESSION [None]
  - DRUG RESISTANCE [None]
  - FEBRILE INFECTION [None]
  - HODGKIN'S DISEASE [None]
  - MALIGNANT NEOPLASM PROGRESSION [None]
  - NEUTROPENIA [None]
  - STAPHYLOCOCCAL SEPSIS [None]
  - TRANSPLANT [None]
